FAERS Safety Report 9257244 (Version 14)
Quarter: 2016Q1

REPORT INFORMATION
  Report Type: Report from Study
  Country: JP (occurrence: JP)
  Receive Date: 20130426
  Receipt Date: 20160308
  Transmission Date: 20160526
  Serious: Yes (Life-Threatening, Hospitalization, Other)
  Sender: FDA-Public Use
  Company Number: PHHY2013JP040781

PATIENT
  Age: 6 Year
  Sex: Male
  Weight: 19 kg

DRUGS (31)
  1. ACZ885 [Suspect]
     Active Substance: CANAKINUMAB
     Dosage: 144 MG, UNK
     Route: 058
     Dates: start: 20130813, end: 20130813
  2. ACZ885 [Suspect]
     Active Substance: CANAKINUMAB
     Dosage: 180 MG, UNK
     Route: 058
     Dates: start: 20140327, end: 20140327
  3. PREDONINE//PREDNISOLONE [Concomitant]
     Indication: HISTIOCYTOSIS HAEMATOPHAGIC
  4. PROGRAF [Concomitant]
     Active Substance: TACROLIMUS\TACROLIMUS ANHYDROUS
     Indication: HISTIOCYTOSIS HAEMATOPHAGIC
     Dosage: 1 MG, UNK
     Route: 048
     Dates: start: 20131108, end: 20140103
  5. CELLCEPT [Concomitant]
     Active Substance: MYCOPHENOLATE MOFETIL\MYCOPHENOLATE MOFETIL HYDROCHLORIDE
     Indication: HISTIOCYTOSIS HAEMATOPHAGIC
     Dosage: 250 MG, UNK
     Route: 048
     Dates: start: 20140104, end: 20150123
  6. ACZ885 [Suspect]
     Active Substance: CANAKINUMAB
     Dosage: 144 MG, UNK
     Route: 058
     Dates: start: 20130720, end: 20130720
  7. ACZ885 [Suspect]
     Active Substance: CANAKINUMAB
     Dosage: 144 MG, UNK
     Route: 058
     Dates: start: 20131016, end: 20131016
  8. NEORAL [Concomitant]
     Active Substance: CYCLOSPORINE
     Indication: HISTIOCYTOSIS HAEMATOPHAGIC
     Dosage: 100 MG, UNK
     Route: 048
     Dates: start: 20120508, end: 20130514
  9. PREDONINE//PREDNISOLONE [Concomitant]
     Indication: CHRONIC INFANTILE NEUROLOGICAL CUTANEOUS AND ARTICULAR SYNDROME
     Dosage: 4 MG, UNK
     Route: 048
     Dates: start: 20120409
  10. ACZ885 [Suspect]
     Active Substance: CANAKINUMAB
     Dosage: 144 MG, UNK
     Route: 058
     Dates: start: 20130601, end: 20130601
  11. ACZ885 [Suspect]
     Active Substance: CANAKINUMAB
     Dosage: 112.5 MG, UNK
     Route: 058
     Dates: start: 20130310, end: 20130310
  12. ACZ885 [Suspect]
     Active Substance: CANAKINUMAB
     Dosage: 112.5 MG, UNK
     Route: 058
     Dates: start: 20130402, end: 20130402
  13. METHOTREXATE [Concomitant]
     Active Substance: METHOTREXATE
     Indication: HISTIOCYTOSIS HAEMATOPHAGIC
     Dosage: 7.5 MG, UNK
     Route: 048
     Dates: start: 20120409, end: 20130125
  14. SANDIMMUN [Concomitant]
     Active Substance: CYCLOSPORINE
     Indication: PRODUCT USED FOR UNKNOWN INDICATION
     Dosage: 40 MG, UNK
     Route: 065
     Dates: start: 20130322, end: 20130331
  15. ACZ885 [Suspect]
     Active Substance: CANAKINUMAB
     Dosage: 144 MG, UNK
     Route: 058
     Dates: start: 20130501, end: 20130501
  16. ACZ885 [Suspect]
     Active Substance: CANAKINUMAB
     Dosage: 144 MG, UNK
     Route: 058
     Dates: start: 20131113, end: 20131113
  17. ACZ885 [Suspect]
     Active Substance: CANAKINUMAB
     Dosage: 195 MG, UNK
     Route: 058
     Dates: start: 20131211, end: 20131211
  18. ACZ885 [Suspect]
     Active Substance: CANAKINUMAB
     Dosage: 180 MG, UNK
     Route: 058
     Dates: start: 20140422, end: 20140422
  19. PREDNISOLONE. [Concomitant]
     Active Substance: PREDNISOLONE
     Indication: CHRONIC INFANTILE NEUROLOGICAL CUTANEOUS AND ARTICULAR SYNDROME
     Dosage: 10 MG, UNK
     Route: 048
     Dates: start: 201303
  20. SOLU-MEDROL [Concomitant]
     Active Substance: METHYLPREDNISOLONE SODIUM SUCCINATE
     Indication: PRODUCT USED FOR UNKNOWN INDICATION
     Dosage: 600 MG, UNK
     Route: 065
     Dates: start: 20130331, end: 20130402
  21. ACZ885 [Suspect]
     Active Substance: CANAKINUMAB
     Dosage: 75 MG, UNK
     Route: 058
     Dates: start: 20130215, end: 20130215
  22. ACZ885 [Suspect]
     Active Substance: CANAKINUMAB
     Dosage: 144 MG, UNK
     Route: 058
     Dates: start: 20130910, end: 20130910
  23. ACZ885 [Suspect]
     Active Substance: CANAKINUMAB
     Dosage: 195 MG, UNK
     Route: 058
     Dates: start: 20140130, end: 20140130
  24. NEORAL [Concomitant]
     Active Substance: CYCLOSPORINE
     Dosage: 50 MG, UNK
     Route: 048
     Dates: start: 201303
  25. ACTEMRA [Concomitant]
     Active Substance: TOCILIZUMAB
     Dosage: 180 MG, UNK
     Route: 042
     Dates: start: 20140501
  26. PREDNISOLONE. [Concomitant]
     Active Substance: PREDNISOLONE
     Indication: HISTIOCYTOSIS HAEMATOPHAGIC
  27. ACZ885 [Suspect]
     Active Substance: CANAKINUMAB
     Indication: CHRONIC INFANTILE NEUROLOGICAL CUTANEOUS AND ARTICULAR SYNDROME
     Dosage: 37.5 MG, UNK
     Route: 058
     Dates: start: 20130125, end: 20130125
  28. ACZ885 [Suspect]
     Active Substance: CANAKINUMAB
     Dosage: 144 MG, UNK
     Route: 058
     Dates: start: 20130629, end: 20130629
  29. ACTEMRA [Concomitant]
     Active Substance: TOCILIZUMAB
     Indication: CHRONIC INFANTILE NEUROLOGICAL CUTANEOUS AND ARTICULAR SYNDROME
     Dosage: UNK
     Route: 042
     Dates: start: 20120803, end: 20130111
  30. ACZ885 [Suspect]
     Active Substance: CANAKINUMAB
     Dosage: 195 MG, UNK
     Route: 058
     Dates: start: 20140102, end: 20140102
  31. ACZ885 [Suspect]
     Active Substance: CANAKINUMAB
     Dosage: 180 MG, UNK
     Route: 058
     Dates: start: 20140227, end: 20140227

REACTIONS (24)
  - Cough [Unknown]
  - Pleural effusion [Recovering/Resolving]
  - Multiple organ dysfunction syndrome [Unknown]
  - Renal impairment [Unknown]
  - Haemorrhagic disorder [Unknown]
  - Cardiac hypertrophy [Unknown]
  - Pneumonia [Recovering/Resolving]
  - Disseminated intravascular coagulation [Unknown]
  - Serum amyloid A protein increased [Recovering/Resolving]
  - Pancytopenia [Unknown]
  - Hepatomegaly [Unknown]
  - Splenomegaly [Unknown]
  - Blood lactate dehydrogenase increased [Recovering/Resolving]
  - Histiocytosis haematophagic [Recovered/Resolved]
  - Haemoglobin decreased [Recovering/Resolving]
  - Serum ferritin increased [Recovering/Resolving]
  - Platelet count decreased [Recovered/Resolved]
  - Bronchopulmonary aspergillosis [Recovering/Resolving]
  - Serum amyloid A protein increased [Recovered/Resolved]
  - Sepsis [Unknown]
  - Hepatic function abnormal [Recovered/Resolved]
  - Histiocytosis haematophagic [Recovering/Resolving]
  - Pyrexia [Unknown]
  - Hypertension [Recovering/Resolving]

NARRATIVE: CASE EVENT DATE: 20130208
